FAERS Safety Report 9322826 (Version 1)
Quarter: 2013Q2

REPORT INFORMATION
  Report Type: Report from Study
  Country: CA (occurrence: CA)
  Receive Date: 20130602
  Receipt Date: 20130602
  Transmission Date: 20140414
  Serious: Yes (Other)
  Sender: FDA-Public Use
  Company Number: CA-ROCHE-1231183

PATIENT
  Sex: Female

DRUGS (3)
  1. PEGASYS [Suspect]
     Indication: HEPATITIS C
     Route: 058
  2. RIBAVIRIN [Concomitant]
     Indication: HEPATITIS C
     Route: 065
  3. VICTRELIS [Concomitant]
     Indication: HEPATITIS C
     Route: 065

REACTIONS (1)
  - Pulmonary mass [Unknown]
